FAERS Safety Report 14791489 (Version 1)
Quarter: 2018Q2

REPORT INFORMATION
  Report Type: Spontaneous
  Country: US (occurrence: US)
  Receive Date: 20180413
  Receipt Date: 20180413
  Transmission Date: 20180711
  Serious: Yes (Other)
  Sender: FDA-Public Use
  Company Number: None

PATIENT
  Age: 57 Year
  Sex: Male

DRUGS (8)
  1. ATENOLOL. [Concomitant]
     Active Substance: ATENOLOL
     Dates: start: 20170605
  2. FOLIC ACID. [Concomitant]
     Active Substance: FOLIC ACID
     Dates: start: 20140711
  3. HYDROXYCHLOR [Concomitant]
     Active Substance: HYDROXYCHLOROQUINE
     Dates: start: 20140711
  4. ACTEMRA [Suspect]
     Active Substance: TOCILIZUMAB
     Indication: RHEUMATOID ARTHRITIS
     Route: 058
     Dates: start: 20170613
  5. MULTIVITAMIN [Concomitant]
     Active Substance: VITAMINS
     Dates: start: 20160517
  6. SULFAZINE [Concomitant]
     Active Substance: SULFASALAZINE
     Dates: start: 20140711
  7. EPISIL [Concomitant]
     Dates: start: 20180404
  8. AZATHIOPRINE. [Concomitant]
     Active Substance: AZATHIOPRINE
     Dates: start: 20170605

REACTIONS (3)
  - Throat cancer [None]
  - Tongue neoplasm malignant stage unspecified [None]
  - Bone cancer [None]
